FAERS Safety Report 5645662-6 (Version None)
Quarter: 2008Q1

REPORT INFORMATION
  Report Type: 
  Country: None (occurrence: None)
  Receive Date: 20080229
  Receipt Date: 20080227
  Transmission Date: 20080703
  Serious: Yes (Other)
  Sender: FDA-Public Use
  Company Number: JP-WYE-H02670508

PATIENT
  Age: 72 Year
  Sex: Female

DRUGS (1)
  1. OSTELUC [Suspect]
     Route: 048
     Dates: start: 20061121, end: 20061204

REACTIONS (1)
  - DRUG ERUPTION [None]
